FAERS Safety Report 17506965 (Version 1)
Quarter: 2020Q1

REPORT INFORMATION
  Report Type: Spontaneous
  Country: US (occurrence: US)
  Receive Date: 20200305
  Receipt Date: 20200305
  Transmission Date: 20200409
  Serious: No
  Sender: FDA-Public Use
  Company Number: US-ROCHE-2501933

PATIENT
  Sex: Female
  Weight: 96.25 kg

DRUGS (3)
  1. ARMOUR THYROID [Concomitant]
     Active Substance: THYROID, PORCINE
     Dosage: ONGOING: UNKNOWN
     Route: 048
     Dates: start: 20170531
  2. SYMBICORT [Concomitant]
     Active Substance: BUDESONIDE\FORMOTEROL FUMARATE DIHYDRATE
     Dosage: ONGOING: UNKNOWN?INHALATION
     Route: 065
     Dates: start: 20170531
  3. XOLAIR [Suspect]
     Active Substance: OMALIZUMAB
     Indication: RHINITIS ALLERGIC
     Dosage: ONGOING
     Route: 058
     Dates: start: 20170706

REACTIONS (1)
  - Laryngitis [Unknown]
